FAERS Safety Report 8321888-8 (Version None)
Quarter: 2012Q2

REPORT INFORMATION
  Report Type: 
  Country: None (occurrence: None)
  Receive Date: 20120430
  Receipt Date: 20120426
  Transmission Date: 20120825
  Serious: Yes (Hospitalization)
  Sender: FDA-Public Use
  Company Number: ES-GLAXOSMITHKLINE-Z0014824B

PATIENT
  Sex: Male

DRUGS (4)
  1. BOI-K [Concomitant]
     Indication: SUPPLEMENTATION THERAPY
     Dosage: 1TAB TWICE PER DAY
     Route: 048
     Dates: start: 20120417, end: 20120419
  2. URSOCHOL [Concomitant]
     Indication: PROPHYLAXIS
     Dosage: 300MG THREE TIMES PER DAY
     Route: 048
     Dates: start: 20120419
  3. ELTROMBOPAG [Suspect]
     Indication: THROMBOCYTOPENIA
     Route: 048
     Dates: start: 20120222
  4. FUROSEMIDE [Concomitant]
     Indication: PROPHYLAXIS
     Dosage: 1 PER DAY
     Route: 042
     Dates: start: 20120417, end: 20120418

REACTIONS (1)
  - HAEMOLYTIC ANAEMIA [None]
